FAERS Safety Report 9518252 (Version 1)
Quarter: 2013Q3

REPORT INFORMATION
  Report Type: Spontaneous
  Country: MW (occurrence: None)
  Receive Date: 20130910
  Receipt Date: 20130910
  Transmission Date: 20140515
  Serious: Yes (Disabling, Other)
  Sender: FDA-Public Use
  Company Number: 2013P1019013

PATIENT
  Age: 25 Year
  Sex: Male

DRUGS (4)
  1. NEVIRAPINE [Suspect]
     Indication: ANTIRETROVIRAL THERAPY
     Dates: start: 2012
  2. COTRIMOXAZOLE [Suspect]
     Dates: start: 201208
  3. STAVUDINE [Suspect]
     Indication: ANTIRETROVIRAL THERAPY
     Dates: start: 2012
  4. LAMIVUDINE [Suspect]
     Indication: ANTIRETROVIRAL THERAPY
     Dates: start: 2012

REACTIONS (11)
  - Stevens-Johnson syndrome [None]
  - Blindness [None]
  - Endophthalmitis [None]
  - Symblepharon [None]
  - Conjunctival disorder [None]
  - Conjunctival oedema [None]
  - Conjunctivitis [None]
  - Corneal epithelium defect [None]
  - Corneal thinning [None]
  - Flat anterior chamber of eye [None]
  - Anterior chamber opacity [None]
